FAERS Safety Report 7112114-6 (Version None)
Quarter: 2010Q4

REPORT INFORMATION
  Report Type: 
  Country: None (occurrence: None)
  Receive Date: 20101119
  Receipt Date: 20091112
  Transmission Date: 20110411
  Serious: No
  Sender: FDA-Public Use
  Company Number: A0816790A

PATIENT
  Age: 38 Year
  Sex: Male

DRUGS (2)
  1. AVODART [Suspect]
     Dosage: .5MG UNKNOWN
     Route: 065
  2. NO CONCURRENT MEDICATION [Concomitant]

REACTIONS (4)
  - ALOPECIA [None]
  - BURNING SENSATION [None]
  - PRURITUS [None]
  - SKIN DISORDER [None]
